FAERS Safety Report 8965003 (Version 3)
Quarter: 2013Q1

REPORT INFORMATION
  Report Type: Spontaneous
  Country: PT (occurrence: PT)
  Receive Date: 20121214
  Receipt Date: 20130201
  Transmission Date: 20140127
  Serious: Yes (Life-Threatening, Hospitalization)
  Sender: FDA-Public Use
  Company Number: PT-ASTRAZENECA-2012SE92932

PATIENT
  Age: 46 Year
  Sex: Female

DRUGS (10)
  1. BRILIQUE [Suspect]
     Indication: ACUTE CORONARY SYNDROME
     Route: 048
     Dates: start: 20121128, end: 20121207
  2. BRILIQUE [Suspect]
     Indication: PERCUTANEOUS CORONARY INTERVENTION
     Route: 048
     Dates: start: 20121128, end: 20121207
  3. CLOPIDOGREL [Suspect]
     Dates: start: 20121208
  4. LISINOPRIL [Concomitant]
     Dates: start: 20121208
  5. CARVEDILOL [Concomitant]
     Dates: start: 20121208
  6. TROMALYT [Concomitant]
     Dosage: DAILY
  7. ATORVASTATIN [Concomitant]
     Dates: start: 20121208
  8. NITRADISC [Concomitant]
     Route: 062
     Dates: start: 20121208
  9. ESOMEPRAZOL [Concomitant]
  10. OMEPRAZOLE [Concomitant]

REACTIONS (5)
  - Acute pulmonary oedema [Unknown]
  - Dyspnoea [Recovering/Resolving]
  - Wheezing [Unknown]
  - Pulmonary congestion [Unknown]
  - Hypertension [Unknown]
